FAERS Safety Report 14099820 (Version 1)
Quarter: 2017Q4

REPORT INFORMATION
  Report Type: Spontaneous
  Country: HU (occurrence: HU)
  Receive Date: 20171017
  Receipt Date: 20171017
  Transmission Date: 20180321
  Serious: Yes (Death, Hospitalization, Other)
  Sender: FDA-Public Use
  Company Number: HU-INCYTE CORPORATION-2017IN008559

PATIENT

DRUGS (1)
  1. JAKAVI [Suspect]
     Active Substance: RUXOLITINIB
     Indication: MYELOFIBROSIS
     Dosage: 15 MG, BID (2X/DAY)
     Route: 065
     Dates: start: 201502

REACTIONS (3)
  - Post procedural complication [Fatal]
  - Thrombocytopenia [Unknown]
  - Aspiration [Fatal]
